FAERS Safety Report 21920811 (Version 1)
Quarter: 2023Q1

REPORT INFORMATION
  Report Type: Report from Study
  Country: BE (occurrence: BE)
  Receive Date: 20230127
  Receipt Date: 20230127
  Transmission Date: 20230417
  Serious: Yes (Death)
  Sender: FDA-Public Use
  Company Number: BE-ABBVIE-4284593

PATIENT
  Sex: Male
  Weight: 73 kg

DRUGS (17)
  1. CARBIDOPA\LEVODOPA [Suspect]
     Active Substance: CARBIDOPA\LEVODOPA
     Indication: Parkinson^s disease
     Dosage: MD 10.0 ML, CD 3.2 ML/H RUNNING AT 16H, ED 3.7
     Route: 050
     Dates: start: 20220916, end: 20220928
  2. CARBIDOPA\LEVODOPA [Suspect]
     Active Substance: CARBIDOPA\LEVODOPA
     Dosage: MD 10.0, CD 3.2 ML/H RUNNING AT 16H, ED 3.7 ML
     Route: 050
     Dates: start: 20220928
  3. CARBIDOPA\LEVODOPA [Suspect]
     Active Substance: CARBIDOPA\LEVODOPA
     Route: 050
     Dates: start: 20200128
  4. ATORVASTATIN [Concomitant]
     Active Substance: ATORVASTATIN
     Indication: Product used for unknown indication
  5. Prolopa 250 [Concomitant]
     Indication: Product used for unknown indication
     Dosage: 1/2 TABLET/ 1X AT 22 HOUR
  6. VITAMIN A PALMITATE [Concomitant]
     Active Substance: VITAMIN A PALMITATE
     Indication: Product used for unknown indication
     Dosage: ADULT
  7. VITAMIN B12 [Concomitant]
     Active Substance: CYANOCOBALAMIN
     Indication: Product used for unknown indication
  8. Oxazepam 15 MG [Concomitant]
     Indication: Product used for unknown indication
  9. CLOPIDOGREL [Concomitant]
     Active Substance: CLOPIDOGREL BISULFATE
     Indication: Product used for unknown indication
  10. Asaflow 80 [Concomitant]
     Indication: Product used for unknown indication
     Dosage: ONCE PER DAY AT 7
  11. Prolopa 125 [Concomitant]
     Indication: Parkinson^s disease
     Dosage: 1 TABLET /DISP/  AT NIGHTS + DUODOPA DURING THE DAY
  12. Prolopa 125 [Concomitant]
     Indication: Parkinson^s disease
     Dosage: AT NIGHTS + DUODOPA DURING THE DAY
  13. PRAMIPEXOLE [Concomitant]
     Active Substance: PRAMIPEXOLE
     Indication: Product used for unknown indication
     Dosage: AT 7 HOUR  / 0.26 UNKNOWN
  14. PRAMIPEXOLE [Concomitant]
     Active Substance: PRAMIPEXOLE
     Indication: Product used for unknown indication
     Dosage: AT 7 IN THE MORNING/ 3.15 UNKNOWN
  15. STALEVO [Concomitant]
     Active Substance: CARBIDOPA\ENTACAPONE\LEVODOPA
     Indication: Product used for unknown indication
     Dosage: FREQUENCY TEXT: AT 7, AT 11, AT 15, AT 19
  16. MAGNESIUM [Concomitant]
     Active Substance: MAGNESIUM
     Indication: Product used for unknown indication
     Dosage: ONGOING
  17. OLMESARTAN MEDOXOMIL [Concomitant]
     Active Substance: OLMESARTAN MEDOXOMIL
     Indication: Product used for unknown indication
     Dosage: ONGOING

REACTIONS (1)
  - Death [Fatal]
